FAERS Safety Report 22240084 (Version 1)
Quarter: 2023Q2

REPORT INFORMATION
  Report Type: Spontaneous
  Country: US (occurrence: US)
  Receive Date: 20230421
  Receipt Date: 20230421
  Transmission Date: 20230721
  Serious: Yes (Hospitalization, Other)
  Sender: FDA-Public Use
  Company Number: US-drreddys-SPO/USA/23/0163955

PATIENT
  Age: 40 Year
  Sex: Male

DRUGS (4)
  1. HEPARIN SODIUM [Suspect]
     Active Substance: HEPARIN SODIUM
     Indication: Anticoagulant therapy
     Route: 013
  2. HEPARIN SODIUM [Suspect]
     Active Substance: HEPARIN SODIUM
     Dosage: BOLUS
     Route: 042
  3. ASPIRIN [Concomitant]
     Active Substance: ASPIRIN
     Indication: Anticoagulant therapy
  4. TICAGRELOR [Concomitant]
     Active Substance: TICAGRELOR
     Indication: Antiplatelet therapy

REACTIONS (6)
  - Electrocardiogram ST segment elevation [Recovering/Resolving]
  - Condition aggravated [Recovering/Resolving]
  - Vascular stent thrombosis [Recovering/Resolving]
  - Left ventricular dysfunction [Recovering/Resolving]
  - Myocardial infarction [Recovering/Resolving]
  - Heparin-induced thrombocytopenia [Recovered/Resolved]
